FAERS Safety Report 15591609 (Version 1)
Quarter: 2018Q4

REPORT INFORMATION
  Report Type: Spontaneous
  Country: CA (occurrence: CA)
  Receive Date: 20181107
  Receipt Date: 20181107
  Transmission Date: 20190205
  Serious: Yes (Other)
  Sender: FDA-Public Use
  Company Number: CA-PFIZER INC-2018444650

PATIENT
  Age: 60 Year
  Sex: Male

DRUGS (2)
  1. EFFEXOR XR [Suspect]
     Active Substance: VENLAFAXINE HYDROCHLORIDE
     Dosage: 600 MG, UNK
  2. EFFEXOR XR [Suspect]
     Active Substance: VENLAFAXINE HYDROCHLORIDE
     Dosage: UNK

REACTIONS (6)
  - Prescribed overdose [Unknown]
  - Anxiety [Unknown]
  - Renal impairment [Unknown]
  - Hypoglycaemia [Unknown]
  - Suicidal ideation [Unknown]
  - Hepatic function abnormal [Unknown]
